FAERS Safety Report 16108603 (Version 1)
Quarter: 2019Q1

REPORT INFORMATION
  Report Type: Spontaneous
  Country: GB (occurrence: GB)
  Receive Date: 20190323
  Receipt Date: 20190323
  Transmission Date: 20190418
  Serious: Yes (Hospitalization, Other)
  Sender: FDA-Public Use
  Company Number: GB-ACCORD-113255

PATIENT
  Age: 84 Year
  Sex: Male

DRUGS (1)
  1. MITOMYCIN. [Suspect]
     Active Substance: MITOMYCIN
     Indication: PROPHYLAXIS
     Dosage: 0.1 ML OF 0.2 MG/ML

REACTIONS (3)
  - Conjunctival filtering bleb leak [Recovered/Resolved]
  - Off label use [Unknown]
  - Hypotony of eye [Recovered/Resolved]
